FAERS Safety Report 7783005-2 (Version None)
Quarter: 2011Q3

REPORT INFORMATION
  Report Type: 
  Country: None (occurrence: None)
  Receive Date: 20110928
  Receipt Date: 20110923
  Transmission Date: 20111222
  Serious: No
  Sender: FDA-Public Use
  Company Number: US-PFIZER INC-2011227279

PATIENT
  Sex: Female
  Weight: 63.492 kg

DRUGS (2)
  1. EXCEDRIN (MIGRAINE) [Concomitant]
     Dosage: UNK
  2. PRISTIQ [Suspect]
     Indication: NIGHT SWEATS
     Dosage: 50 MG, 1X/DAY
     Route: 048

REACTIONS (5)
  - MEDICATION ERROR [None]
  - MALAISE [None]
  - MIGRAINE [None]
  - HEAD DISCOMFORT [None]
  - NAUSEA [None]
